FAERS Safety Report 20497628 (Version 1)
Quarter: 2022Q1

REPORT INFORMATION
  Report Type: Spontaneous
  Country: FR (occurrence: FR)
  Receive Date: 20220221
  Receipt Date: 20220221
  Transmission Date: 20220423
  Serious: Yes (Congenital Anomaly, Other)
  Sender: FDA-Public Use
  Company Number: FR-ABBVIE-22K-056-4283224-00

PATIENT
  Sex: Male

DRUGS (2)
  1. VALPROATE SODIUM [Suspect]
     Active Substance: VALPROATE SODIUM
     Indication: Maternal exposure timing unspecified
     Route: 064
     Dates: start: 199203
  2. VALPROATE SODIUM [Suspect]
     Active Substance: VALPROATE SODIUM
     Route: 064
     Dates: start: 20050915, end: 20060614

REACTIONS (15)
  - Ankyloglossia congenital [Unknown]
  - Ear, nose and throat infection [Unknown]
  - Astigmatism [Unknown]
  - Aphasia [Unknown]
  - Speech disorder [Unknown]
  - Speech sound disorder [Unknown]
  - Nightmare [Unknown]
  - Sleep disorder [Unknown]
  - Memory impairment [Unknown]
  - Attention deficit hyperactivity disorder [Unknown]
  - Language disorder [Unknown]
  - Hypospadias [Unknown]
  - Disturbance in attention [Unknown]
  - Anxiety [Unknown]
  - Foetal exposure during pregnancy [Unknown]

NARRATIVE: CASE EVENT DATE: 20211201
